FAERS Safety Report 18844913 (Version 1)
Quarter: 2021Q1

REPORT INFORMATION
  Report Type: Spontaneous
  Country: US (occurrence: US)
  Receive Date: 20210204
  Receipt Date: 20210204
  Transmission Date: 20210419
  Serious: Yes (Life-Threatening, Hospitalization)
  Sender: FDA-Public Use
  Company Number: US-MYLANLABS-2021M1007191

PATIENT
  Age: 20 Year
  Sex: Female

DRUGS (8)
  1. VERAPAMIL [Suspect]
     Active Substance: VERAPAMIL HYDROCHLORIDE
     Indication: PRODUCT USED FOR UNKNOWN INDICATION
     Dosage: THE WOMAN INTENTIONALLY INGESTED APPROXIMATELY ??.
     Route: 048
  2. SODIUM BICARBONATE. [Concomitant]
     Active Substance: SODIUM BICARBONATE
     Indication: TOXICITY TO VARIOUS AGENTS
     Dosage: 350 MILLIEQUIVALENT
     Route: 065
  3. INSULIN GLARGINE [Suspect]
     Active Substance: INSULIN GLARGINE
     Indication: TOXICITY TO VARIOUS AGENTS
     Dosage: 1 INTERNATIONAL UNIT/KILOGRAM, QH  CONTINUOUS INFUSION
  4. DEXTROSE. [Concomitant]
     Active Substance: DEXTROSE
     Indication: TOXICITY TO VARIOUS AGENTS
     Dosage: 145 MILLILITER, QH
  5. KETAMINE [Concomitant]
     Active Substance: KETAMINE
     Indication: SEDATION
     Dosage: 1 MILLIGRAM/KILOGRAM INTERMITTENT KETAMINE (1 MG/ KG) BOLUSES
     Route: 040
  6. NOREPINEPHRINE. [Concomitant]
     Active Substance: NOREPINEPHRINE
     Indication: HYPOTENSION
  7. CALCIUM GLUCONATE. [Suspect]
     Active Substance: CALCIUM GLUCONATE
     Indication: TOXICITY TO VARIOUS AGENTS
     Dosage: 4 GRAM
     Route: 065
  8. NOREPINEPHRINE. [Concomitant]
     Active Substance: NOREPINEPHRINE
     Indication: TOXICITY TO VARIOUS AGENTS
     Dosage: 0.02 MICROGRAM/KILOGRAM, QMINUTE

REACTIONS (18)
  - Atrioventricular block first degree [Recovering/Resolving]
  - Cardiogenic shock [Recovering/Resolving]
  - Mental status changes [Unknown]
  - Pneumonia aspiration [Unknown]
  - Intentional overdose [Recovering/Resolving]
  - Acute kidney injury [Unknown]
  - Thrombosis [Unknown]
  - Vomiting [Unknown]
  - Acidosis [Recovering/Resolving]
  - Depressed level of consciousness [Unknown]
  - Hypotension [Recovering/Resolving]
  - Mental impairment [Unknown]
  - Renal tubular necrosis [Unknown]
  - Sinus bradycardia [Recovering/Resolving]
  - Drug ineffective [Unknown]
  - Toxicity to various agents [Recovering/Resolving]
  - Tricuspid valve disease [Unknown]
  - Hypokalaemia [Unknown]
